FAERS Safety Report 9284148 (Version 2)
Quarter: 2013Q4

REPORT INFORMATION
  Report Type: Report from Study
  Country: US (occurrence: US)
  Receive Date: 20130510
  Receipt Date: 20131121
  Transmission Date: 20140711
  Serious: No
  Sender: FDA-Public Use
  Company Number: US-US-EMD SERONO, INC.-7210195

PATIENT
  Sex: Male

DRUGS (3)
  1. REBIF [Suspect]
     Indication: MULTIPLE SCLEROSIS
     Route: 058
     Dates: start: 20080702, end: 20100301
  2. REBIF [Suspect]
     Route: 058
     Dates: start: 20130318
  3. TYLENOL EXTRA STRENGTH [Concomitant]
     Indication: PYREXIA

REACTIONS (3)
  - Diverticulitis [Recovered/Resolved]
  - Muscular weakness [Not Recovered/Not Resolved]
  - Headache [Unknown]
